FAERS Safety Report 16225567 (Version 4)
Quarter: 2019Q2

REPORT INFORMATION
  Report Type: Spontaneous
  Country: KR (occurrence: KR)
  Receive Date: 20190422
  Receipt Date: 20190617
  Transmission Date: 20190711
  Serious: Yes (Hospitalization, Other)
  Sender: FDA-Public Use
  Company Number: KR-009507513-1903KOR012442

PATIENT
  Sex: Female

DRUGS (10)
  1. KEYTRUDA [Suspect]
     Active Substance: PEMBROLIZUMAB
     Dosage: QUANTITY 2; DAYS 1
     Dates: start: 20190407, end: 20190407
  2. KEYTRUDA [Suspect]
     Active Substance: PEMBROLIZUMAB
     Dosage: QUANTITY 2, DAYS 1
     Dates: start: 20190519, end: 20190519
  3. TAMIPOOL [Concomitant]
     Active Substance: VITAMINS
     Dosage: QUANTITY: 1 DAYS: 5
     Dates: start: 20190315, end: 20190318
  4. SODIUM CHLORIDE. [Concomitant]
     Active Substance: SODIUM CHLORIDE
     Dosage: QUANTITY: 1 DAYS: 2
     Dates: start: 20190316, end: 20190316
  5. KEYTRUDA [Suspect]
     Active Substance: PEMBROLIZUMAB
     Dosage: QUANTITY 2; DAYS 2
     Dates: start: 20190428, end: 20190428
  6. WINUF PERI [Concomitant]
     Dosage: QUANTITY: 1 DAYS: 3
     Dates: start: 20190316, end: 20190316
  7. KEYTRUDA [Suspect]
     Active Substance: PEMBROLIZUMAB
     Indication: OVARIAN CANCER
     Dosage: QUANTITY 2; DAYS 1
     Dates: start: 20190316, end: 20190316
  8. KEYTRUDA [Suspect]
     Active Substance: PEMBROLIZUMAB
     Dosage: QUANTITY 2; DAYS 1
     Dates: start: 20190609, end: 20190609
  9. DONG A GASTER [Concomitant]
     Dosage: QUANTITY: 2 DAYS: 3
     Dates: start: 20190315, end: 20190318
  10. ABSTRAL [Concomitant]
     Active Substance: FENTANYL CITRATE
     Dosage: QUANTITY: 1 DAYS: 2
     Route: 060
     Dates: start: 20190316, end: 20190318

REACTIONS (14)
  - Ureteral stent insertion [Unknown]
  - Product use in unapproved indication [Unknown]
  - Therapeutic procedure [Unknown]
  - Wound treatment [Unknown]
  - Therapeutic procedure [Unknown]
  - Adverse event [Unknown]
  - Nephrostomy [Unknown]
  - Therapeutic procedure [Unknown]
  - Adverse event [Unknown]
  - Intestinal fistula [Unknown]
  - Therapeutic procedure [Unknown]
  - Adverse event [Unknown]
  - Adverse event [Unknown]
  - Ureteral stent removal [Unknown]

NARRATIVE: CASE EVENT DATE: 2019
